FAERS Safety Report 21350026 (Version 1)
Quarter: 2022Q3

REPORT INFORMATION
  Report Type: Spontaneous
  Country: US (occurrence: US)
  Receive Date: 20220919
  Receipt Date: 20220919
  Transmission Date: 20221027
  Serious: Yes (Other)
  Sender: FDA-Public Use
  Company Number: US-AMGEN-USASP2022159286

PATIENT
  Sex: Female

DRUGS (3)
  1. AIMOVIG [Suspect]
     Active Substance: ERENUMAB-AOOE
     Indication: Immunosuppression
     Dosage: UNK
     Route: 065
  2. AIMOVIG [Suspect]
     Active Substance: ERENUMAB-AOOE
     Indication: Off label use
  3. TEPEZZA [Concomitant]
     Active Substance: TEPROTUMUMAB-TRBW
     Indication: Endocrine ophthalmopathy
     Dosage: UNK
     Route: 042

REACTIONS (12)
  - Surgery [Unknown]
  - Colitis ulcerative [Unknown]
  - Cataract [Unknown]
  - Decreased immune responsiveness [Unknown]
  - Eye irritation [Unknown]
  - Nail growth abnormal [Not Recovered/Not Resolved]
  - Gastritis [Unknown]
  - Diplopia [Unknown]
  - Eye inflammation [Unknown]
  - Periorbital swelling [Unknown]
  - Blood glucose increased [Unknown]
  - Off label use [Unknown]
